FAERS Safety Report 5727103-3 (Version None)
Quarter: 2008Q2

REPORT INFORMATION
  Report Type: 
  Country: None (occurrence: None)
  Receive Date: 20080430
  Receipt Date: 20080415
  Transmission Date: 20081010
  Serious: Yes (Hospitalization)
  Sender: FDA-Public Use
  Company Number: 2008S1006260

PATIENT
  Age: 4 Decade
  Sex: Female

DRUGS (17)
  1. PREDNISOLONE [Suspect]
     Indication: COLITIS ULCERATIVE
     Dates: start: 20030101
  2. PREDNISOLONE [Suspect]
     Indication: PROPHYLAXIS AGAINST TRANSPLANT REJECTION
     Dates: start: 20030101
  3. PREDNISOLONE [Suspect]
     Indication: COLITIS ULCERATIVE
     Dates: start: 20030101
  4. PREDNISOLONE [Suspect]
     Indication: PROPHYLAXIS AGAINST TRANSPLANT REJECTION
     Dates: start: 20030101
  5. PREDNISOLONE [Suspect]
     Indication: COLITIS ULCERATIVE
     Dates: start: 20060701
  6. PREDNISOLONE [Suspect]
     Indication: PROPHYLAXIS AGAINST TRANSPLANT REJECTION
     Dates: start: 20060701
  7. PREDNISOLONE [Suspect]
     Indication: COLITIS ULCERATIVE
     Dates: start: 20060901
  8. PREDNISOLONE [Suspect]
     Indication: PROPHYLAXIS AGAINST TRANSPLANT REJECTION
     Dates: start: 20060901
  9. TACROLIMUS [Suspect]
     Indication: PROPHYLAXIS AGAINST TRANSPLANT REJECTION
  10. AZATHIOPRINE [Suspect]
     Indication: COLITIS ULCERATIVE
     Dates: start: 20030101
  11. AZATHIOPRINE [Suspect]
     Indication: PROPHYLAXIS AGAINST TRANSPLANT REJECTION
     Dates: start: 20030101
  12. AZATHIOPRINE [Suspect]
     Indication: COLITIS ULCERATIVE
     Dates: start: 20060901
  13. AZATHIOPRINE [Suspect]
     Indication: PROPHYLAXIS AGAINST TRANSPLANT REJECTION
     Dates: start: 20060901
  14. CYCLOSPORINE [Suspect]
     Indication: PROPHYLAXIS
     Dates: start: 20030101
  15. LAMIVUDINE [Concomitant]
  16. MESALAMINE [Concomitant]
  17. VALACYCLOVIR [Concomitant]

REACTIONS (7)
  - BLEEDING VARICOSE VEIN [None]
  - COLITIS ULCERATIVE [None]
  - COMPLICATIONS OF TRANSPLANTED LIVER [None]
  - HEPATIC CIRRHOSIS [None]
  - HEPATITIS E [None]
  - LIVER TRANSPLANT [None]
  - SURGICAL PROCEDURE REPEATED [None]
